FAERS Safety Report 11727967 (Version 1)
Quarter: 2015Q4

REPORT INFORMATION
  Report Type: Spontaneous
  Country: VN (occurrence: VN)
  Receive Date: 20151112
  Receipt Date: 20151112
  Transmission Date: 20160304
  Serious: Yes (Disabling)
  Sender: FDA-Public Use
  Company Number: VN-ASTRAZENECA-2015SF07949

PATIENT
  Age: 70 Year
  Sex: Female

DRUGS (1)
  1. IRESSA [Suspect]
     Active Substance: GEFITINIB
     Indication: NON-SMALL CELL LUNG CANCER
     Route: 048
     Dates: start: 20151009, end: 20151104

REACTIONS (3)
  - Vision blurred [Unknown]
  - Eye discharge [Unknown]
  - Photopsia [Unknown]

NARRATIVE: CASE EVENT DATE: 20151028
